FAERS Safety Report 4824581-9 (Version None)
Quarter: 2005Q4

REPORT INFORMATION
  Report Type: 
  Country: None (occurrence: None)
  Receive Date: 20051108
  Receipt Date: 20051025
  Transmission Date: 20060501
  Serious: Yes (Other)
  Sender: FDA-Public Use
  Company Number: EWC051046549

PATIENT
  Age: 65 Year
  Sex: Female

DRUGS (2)
  1. FORTEO [Suspect]
  2. CALCIUM GLUCONATE [Concomitant]

REACTIONS (6)
  - ANTIBODY TEST ABNORMAL [None]
  - BLOOD CALCIUM DECREASED [None]
  - BLOOD PARATHYROID HORMONE ABNORMAL [None]
  - PARAESTHESIA [None]
  - PARATHYROID DISORDER [None]
  - PHARMACEUTICAL PRODUCT COMPLAINT [None]
